FAERS Safety Report 12806959 (Version 1)
Quarter: 2016Q4

REPORT INFORMATION
  Report Type: Spontaneous
  Country: US (occurrence: US)
  Receive Date: 20161003
  Receipt Date: 20161003
  Transmission Date: 20170207
  Serious: Yes (Other)
  Sender: FDA-Public Use
  Company Number: None

PATIENT

DRUGS (1)
  1. CHLORHEXIDINE IV START KIT [Suspect]
     Active Substance: CHLORHEXIDINE
     Indication: PREOPERATIVE CARE
     Route: 061

REACTIONS (2)
  - Documented hypersensitivity to administered product [None]
  - Dermatitis allergic [None]

NARRATIVE: CASE EVENT DATE: 20160801
